FAERS Safety Report 25412145 (Version 1)
Quarter: 2025Q2

REPORT INFORMATION
  Report Type: Spontaneous
  Country: US (occurrence: None)
  Receive Date: 20250606
  Receipt Date: 20250606
  Transmission Date: 20250717
  Serious: No
  Sender: FDA-CTU
  Company Number: None

PATIENT

DRUGS (1)
  1. ABIRATERONE [Suspect]
     Active Substance: ABIRATERONE

REACTIONS (5)
  - Blood pressure increased [None]
  - Fall [None]
  - Back injury [None]
  - Fatigue [None]
  - Gait disturbance [None]
